FAERS Safety Report 5973396-7 (Version None)
Quarter: 2008Q4

REPORT INFORMATION
  Report Type: 
  Country: None (occurrence: None)
  Receive Date: 20081201
  Receipt Date: 20081124
  Transmission Date: 20090506
  Serious: Yes (Death, Hospitalization)
  Sender: FDA-Public Use
  Company Number: PHHO2007PL20900

PATIENT
  Sex: Female

DRUGS (2)
  1. TASIGNA [Suspect]
     Indication: CHRONIC MYELOID LEUKAEMIA
     Dosage: 800MG DAILY
     Route: 048
     Dates: start: 20070918, end: 20071210
  2. ENARENAL [Concomitant]
     Indication: HYPERTENSION

REACTIONS (10)
  - ANAEMIA [None]
  - CARDIAC ARREST [None]
  - CHRONIC MYELOID LEUKAEMIA [None]
  - DRUG INEFFECTIVE [None]
  - ELECTROCARDIOGRAM ST SEGMENT ABNORMAL [None]
  - ELECTROCARDIOGRAM T WAVE ABNORMAL [None]
  - MULTI-ORGAN FAILURE [None]
  - PYREXIA [None]
  - SINUS TACHYCARDIA [None]
  - THROMBOCYTOPENIA [None]
